FAERS Safety Report 26081469 (Version 1)
Quarter: 2025Q4

REPORT INFORMATION
  Report Type: Other
  Country: US (occurrence: US)
  Receive Date: 20251124
  Receipt Date: 20251124
  Transmission Date: 20260117
  Serious: Yes (Other)
  Sender: UNICHEM
  Company Number: US-UNICHEM LABORATORIES LIMITED-UNI-2025-US-003575

PATIENT

DRUGS (1)
  1. LAMOTRIGINE [Suspect]
     Active Substance: LAMOTRIGINE
     Indication: Product used for unknown indication
     Dosage: UNK
     Route: 065

REACTIONS (6)
  - Amenorrhoea [Unknown]
  - Hormone level abnormal [Unknown]
  - Impaired quality of life [Unknown]
  - Drug ineffective [Unknown]
  - Product coating issue [Unknown]
  - Product formulation issue [Unknown]
